APPROVED DRUG PRODUCT: KALETRA
Active Ingredient: LOPINAVIR; RITONAVIR
Strength: 133.3MG;33.3MG
Dosage Form/Route: CAPSULE;ORAL
Application: N021226 | Product #001
Applicant: ABBVIE INC
Approved: Sep 15, 2000 | RLD: No | RS: No | Type: DISCN